FAERS Safety Report 8708935 (Version 2)
Quarter: 2013Q4

REPORT INFORMATION
  Report Type: Spontaneous
  Country: US (occurrence: US)
  Receive Date: 20120806
  Receipt Date: 20131031
  Transmission Date: 20140711
  Serious: No
  Sender: FDA-Public Use
  Company Number: US-009507513-2012SP024461

PATIENT
  Age: 63 Year
  Sex: Male
  Weight: 98.88 kg

DRUGS (7)
  1. MIRALAX [Suspect]
     Indication: INFREQUENT BOWEL MOVEMENTS
     Dosage: UNK UNK, UNKNOWN
     Route: 048
     Dates: start: 20120419
  2. MIRALAX [Suspect]
     Indication: CONSTIPATION
  3. MIRALAX [Suspect]
     Indication: BOWEL MOVEMENT IRREGULARITY
  4. NAPROXEN [Concomitant]
     Indication: PAIN
     Dosage: UNK UNK, UNKNOWN
  5. HYDROCHLOROTHIAZIDE [Concomitant]
     Indication: PRODUCT USED FOR UNKNOWN INDICATION
     Dosage: UNK UNK, UNKNOWN
  6. GABAPENTIN [Concomitant]
     Indication: NERVOUS SYSTEM DISORDER
     Dosage: UNK UNK, UNKNOWN
  7. APRAZ [Concomitant]
     Indication: ANXIETY
     Dosage: UNK UNK, UNKNOWN

REACTIONS (1)
  - Drug ineffective [Recovered/Resolved]
